FAERS Safety Report 12329711 (Version 2)
Quarter: 2017Q3

REPORT INFORMATION
  Report Type: Spontaneous
  Country: DK (occurrence: DK)
  Receive Date: 20160503
  Receipt Date: 20170727
  Transmission Date: 20171127
  Serious: Yes (Hospitalization, Other)
  Sender: FDA-Public Use
  Company Number: DK-GILEAD-2016-0210790

PATIENT
  Age: 70 Year
  Sex: Male

DRUGS (14)
  1. NIVESTIM [Concomitant]
     Active Substance: FILGRASTIM
     Indication: NEUTROPENIA
  2. ZOPICLONE ^ACTAVIS^ [Concomitant]
     Indication: INSOMNIA
  3. ZYDELIG [Suspect]
     Active Substance: IDELALISIB
     Indication: LEUKAEMIA
     Dosage: STYRKE: 150 MG.
     Route: 048
     Dates: start: 20160208
  4. PINEX [Concomitant]
     Active Substance: ACETAMINOPHEN
     Indication: PAIN
     Dosage: DOSIS: VED BEHOV MOD SMERTER
  5. ZOVIR [Concomitant]
     Active Substance: ACYCLOVIR
     Indication: HERPES ZOSTER
  6. CETIRIZIN ACTAVIS [Concomitant]
     Active Substance: CETIRIZINE HYDROCHLORIDE
     Indication: HYPERSENSITIVITY
  7. ALLOPURINOL. [Concomitant]
     Active Substance: ALLOPURINOL
     Indication: GOUTY ARTHRITIS
  8. HJERTEMAGNYL [Concomitant]
     Active Substance: ASPIRIN\MAGNESIUM OXIDE
     Indication: ANTICOAGULANT THERAPY
     Route: 048
  9. ZYDELIG [Suspect]
     Active Substance: IDELALISIB
     Indication: CHRONIC LYMPHOCYTIC LEUKAEMIA
  10. SULFAMETHOXAZOL, TRIMETHOPRIM [Concomitant]
     Indication: INFECTION PROPHYLAXIS
  11. TRADOLAN [Concomitant]
     Active Substance: TRAMADOL
     Indication: PAIN
     Dosage: DOSIS: VED BEHOV MOD SMERTER.
     Route: 048
  12. CYKLONOVA [Concomitant]
     Active Substance: TRANEXAMIC ACID
     Indication: HAEMORRHAGE PROPHYLAXIS
  13. ZOPICLONE ACTAVIS [Concomitant]
     Active Substance: ZOPICLONE
     Indication: INSOMNIA
  14. CRESTOR [Concomitant]
     Active Substance: ROSUVASTATIN CALCIUM
     Indication: HYPERCHOLESTEROLAEMIA
     Route: 048

REACTIONS (5)
  - Psoriasis [Not Recovered/Not Resolved]
  - Acute coronary syndrome [Not Recovered/Not Resolved]
  - Angina pectoris [Unknown]
  - Cardiac failure chronic [Unknown]
  - Coronary artery stenosis [Unknown]

NARRATIVE: CASE EVENT DATE: 201602
